FAERS Safety Report 10270042 (Version 1)
Quarter: 2014Q3

REPORT INFORMATION
  Report Type: Spontaneous
  Country: US (occurrence: US)
  Receive Date: 20140701
  Receipt Date: 20140701
  Transmission Date: 20150326
  Serious: No
  Sender: FDA-Public Use
  Company Number: US-ABBVIE-14P-163-1247667-00

PATIENT
  Sex: Male

DRUGS (6)
  1. VALTREX [Concomitant]
     Active Substance: VALACYCLOVIR HYDROCHLORIDE
     Indication: PRODUCT USED FOR UNKNOWN INDICATION
  2. SOVALDI [Concomitant]
     Active Substance: SOFOSBUVIR
     Indication: PRODUCT USED FOR UNKNOWN INDICATION
  3. RIBAVIRIN. [Concomitant]
     Active Substance: RIBAVIRIN
     Indication: PRODUCT USED FOR UNKNOWN INDICATION
  4. NORVIR [Suspect]
     Active Substance: RITONAVIR
     Indication: HIV INFECTION
  5. ISOTRACE [Concomitant]
     Indication: PRODUCT USED FOR UNKNOWN INDICATION
  6. PREZISTA [Concomitant]
     Active Substance: DARUNAVIR ETHANOLATE
     Indication: PRODUCT USED FOR UNKNOWN INDICATION

REACTIONS (1)
  - Formication [Not Recovered/Not Resolved]
